FAERS Safety Report 5104950-2 (Version None)
Quarter: 2006Q3

REPORT INFORMATION
  Report Type: 
  Country: None (occurrence: None)
  Receive Date: 20060911
  Receipt Date: 20060831
  Transmission Date: 20061208
  Serious: Yes (Hospitalization)
  Sender: FDA-Public Use
  Company Number: 13495155

PATIENT
  Age: 69 Year
  Sex: Female

DRUGS (6)
  1. EMSAM [Suspect]
     Indication: SCHIZOAFFECTIVE DISORDER
     Dosage: 6 MILLIGRAM, 1/24 HOUR TD
     Dates: start: 20060515, end: 20060830
  2. CLONIDINE [Concomitant]
  3. VALIUM [Concomitant]
  4. ZYPREXA [Concomitant]
  5. TRILEPTAL [Concomitant]
  6. CYMBALTA [Concomitant]

REACTIONS (2)
  - UNEVALUABLE EVENT [None]
  - YELLOW SKIN [None]
